FAERS Safety Report 9130754 (Version 1)
Quarter: 2013Q1

REPORT INFORMATION
  Report Type: Spontaneous
  Country: GB (occurrence: GB)
  Receive Date: 20130301
  Receipt Date: 20130301
  Transmission Date: 20140127
  Serious: Yes (Other)
  Sender: FDA-Public Use
  Company Number: PHFR2013GB001426

PATIENT
  Age: 72 Year
  Sex: Male

DRUGS (2)
  1. RIVASTIGMINE [Suspect]
     Indication: DEMENTIA ALZHEIMER^S TYPE
     Dosage: 1.5 MG BID
     Route: 048
     Dates: start: 20120108, end: 20130205
  2. OMEPRAZOLE [Concomitant]

REACTIONS (2)
  - Condition aggravated [Recovering/Resolving]
  - Bradycardia [Recovering/Resolving]
